FAERS Safety Report 17999617 (Version 1)
Quarter: 2020Q3

REPORT INFORMATION
  Report Type: Spontaneous
  Country: US (occurrence: US)
  Receive Date: 20200709
  Receipt Date: 20200709
  Transmission Date: 20201103
  Serious: Yes (Disabling, Other)
  Sender: FDA-Public Use
  Company Number: US-SA-2020SA171645

PATIENT

DRUGS (4)
  1. ZANTAC [Suspect]
     Active Substance: RANITIDINE HYDROCHLORIDE
     Indication: PROPHYLAXIS
  2. ZANTAC [Suspect]
     Active Substance: RANITIDINE HYDROCHLORIDE
     Indication: GASTROOESOPHAGEAL REFLUX DISEASE
     Dosage: 150 MG, QD, AT NIGHT
     Dates: start: 2006, end: 2019
  3. ZANTAC [Suspect]
     Active Substance: RANITIDINE HYDROCHLORIDE
     Indication: ANTACID THERAPY
  4. ZANTAC [Suspect]
     Active Substance: RANITIDINE HYDROCHLORIDE
     Indication: DYSPEPSIA

REACTIONS (19)
  - Discomfort [Unknown]
  - Depression [Unknown]
  - Impaired work ability [Unknown]
  - Impaired quality of life [Unknown]
  - Anxiety [Unknown]
  - Pain [Unknown]
  - Metastases to bone [Unknown]
  - Physical disability [Unknown]
  - Disturbance in attention [Unknown]
  - Asthenia [Unknown]
  - Sleep disorder [Unknown]
  - Psychiatric symptom [Unknown]
  - Illness [Unknown]
  - Hepatic cancer [Unknown]
  - Emotional distress [Unknown]
  - Mental status changes [Unknown]
  - Prostate cancer [Unknown]
  - Malaise [Unknown]
  - Life expectancy shortened [Unknown]

NARRATIVE: CASE EVENT DATE: 202003
